FAERS Safety Report 11005598 (Version 1)
Quarter: 2015Q2

REPORT INFORMATION
  Report Type: Spontaneous
  Country: US (occurrence: US)
  Receive Date: 20150409
  Receipt Date: 20150409
  Transmission Date: 20150821
  Serious: No
  Sender: FDA-Public Use
  Company Number: US-ALLERGAN-1413654US

PATIENT
  Sex: Female

DRUGS (3)
  1. LUMIGAN [Suspect]
     Active Substance: BIMATOPROST
     Indication: GLAUCOMA
     Dosage: 2 GTT, QHS
     Route: 047
  2. TRAVATAN [Suspect]
     Active Substance: TRAVOPROST
     Indication: GLAUCOMA
  3. AZOPT [Concomitant]
     Active Substance: BRINZOLAMIDE

REACTIONS (8)
  - Corneal abrasion [Recovered/Resolved]
  - Growth of eyelashes [Not Recovered/Not Resolved]
  - Photophobia [Recovering/Resolving]
  - Eye irritation [Recovering/Resolving]
  - Ingrown hair [Not Recovered/Not Resolved]
  - Eye pain [Recovered/Resolved]
  - Ocular hyperaemia [Recovering/Resolving]
  - Skin discolouration [Recovering/Resolving]
